FAERS Safety Report 6395559-1 (Version None)
Quarter: 2009Q4

REPORT INFORMATION
  Report Type: 
  Country: None (occurrence: None)
  Receive Date: 20091009
  Receipt Date: 20091005
  Transmission Date: 20100525
  Serious: Yes (Hospitalization, Other)
  Sender: FDA-Public Use
  Company Number: US-MERCK-0904USA00588

PATIENT
  Age: 69 Year
  Sex: Female
  Weight: 70 kg

DRUGS (6)
  1. FOSAMAX [Suspect]
     Indication: OSTEOPOROSIS
     Route: 048
     Dates: start: 19990701
  2. FOSAMAX [Suspect]
     Route: 048
     Dates: start: 20010401, end: 20060101
  3. FOSAMAX [Suspect]
     Indication: OSTEOPENIA
     Route: 048
     Dates: start: 19990701
  4. FOSAMAX [Suspect]
     Route: 048
     Dates: start: 20010401, end: 20060101
  5. SYNTHROID [Concomitant]
     Route: 065
  6. CALCIUM (UNSPECIFIED) [Concomitant]
     Indication: OSTEOPOROSIS
     Route: 065

REACTIONS (10)
  - ARTHROPATHY [None]
  - BONE DISORDER [None]
  - DENTAL CARIES [None]
  - DYSGEUSIA [None]
  - EAR PAIN [None]
  - IMPAIRED HEALING [None]
  - OSTEONECROSIS [None]
  - TOOTH ABSCESS [None]
  - TOOTH DEPOSIT [None]
  - TOOTH FRACTURE [None]
